FAERS Safety Report 25958372 (Version 1)
Quarter: 2025Q4

REPORT INFORMATION
  Report Type: Spontaneous
  Country: US (occurrence: None)
  Receive Date: 20251024
  Receipt Date: 20251024
  Transmission Date: 20260118
  Serious: Yes (unspecified)
  Sender: FDA-CTU
  Company Number: None

PATIENT
  Age: 28 Year
  Sex: Female
  Weight: 66.6 kg

DRUGS (13)
  1. MINOXIDIL [Suspect]
     Active Substance: MINOXIDIL
     Indication: Alopecia
     Dosage: OTHER QUANTITY : 1 TABLET(S)?FREQUENCY : DAILY?
     Route: 048
     Dates: start: 20251002, end: 20251024
  2. MINOXIDIL [Suspect]
     Active Substance: MINOXIDIL
     Indication: Prophylaxis
  3. TESTOSTERONE [Concomitant]
     Active Substance: TESTOSTERONE
  4. CONCERTA [Concomitant]
     Active Substance: METHYLPHENIDATE HYDROCHLORIDE
  5. HYDROXYZINE [Concomitant]
     Active Substance: HYDROXYZINE HYDROCHLORIDE
  6. PRAZOSIN [Concomitant]
     Active Substance: PRAZOSIN
  7. LURASIDONE [Concomitant]
     Active Substance: LURASIDONE
  8. GUANFACINE [Concomitant]
     Active Substance: GUANFACINE
  9. OXCARBAZEPINE [Concomitant]
     Active Substance: OXCARBAZEPINE
  10. ZOLPIDEM [Concomitant]
     Active Substance: ZOLPIDEM TARTRATE
  11. tartrate [Concomitant]
  12. IBUPROFEN [Concomitant]
     Active Substance: IBUPROFEN
  13. LIDOCAINE [Concomitant]
     Active Substance: LIDOCAINE

REACTIONS (17)
  - Chest pain [None]
  - Dyspepsia [None]
  - Dizziness [None]
  - Headache [None]
  - Nausea [None]
  - Nervousness [None]
  - Anxiety [None]
  - Nasopharyngitis [None]
  - Head discomfort [None]
  - Ocular discomfort [None]
  - Post-traumatic stress disorder [None]
  - Flashback [None]
  - Suicidal ideation [None]
  - Panic disorder [None]
  - Cardiovascular disorder [None]
  - Loss of personal independence in daily activities [None]
  - Emotional distress [None]

NARRATIVE: CASE EVENT DATE: 20251019
